FAERS Safety Report 12106276 (Version 1)
Quarter: 2016Q1

REPORT INFORMATION
  Report Type: Report from Study
  Country: JP (occurrence: JP)
  Receive Date: 20160128
  Receipt Date: 20160128
  Transmission Date: 20160526
  Serious: Yes (Other)
  Sender: FDA-Public Use
  Company Number: JP-INCYTE CORPORATION-2015IN004209

PATIENT
  Age: 56 Year
  Sex: Female
  Weight: 44 kg

DRUGS (10)
  1. EXJADE [Concomitant]
     Active Substance: DEFERASIROX
     Indication: PRIMARY MYELOFIBROSIS
     Route: 048
     Dates: start: 20150703, end: 20150904
  2. JAKAFI [Suspect]
     Active Substance: RUXOLITINIB
     Dosage: 10 MG, QD
     Route: 048
     Dates: end: 20150922
  3. CRAVIT [Concomitant]
     Active Substance: LEVOFLOXACIN
     Indication: PRIMARY MYELOFIBROSIS
     Route: 048
     Dates: start: 20150917, end: 20150928
  4. EXJADE [Concomitant]
     Active Substance: DEFERASIROX
     Indication: MYELOFIBROSIS
  5. DIFLUCAN [Concomitant]
     Active Substance: FLUCONAZOLE
     Indication: MYELOFIBROSIS
  6. JAKAFI [Suspect]
     Active Substance: RUXOLITINIB
     Indication: MYELOFIBROSIS
     Dosage: 5 MG, BID
     Route: 048
     Dates: start: 20141128, end: 20150123
  7. CRAVIT [Concomitant]
     Active Substance: LEVOFLOXACIN
     Indication: MYELOFIBROSIS
  8. JAKAFI [Suspect]
     Active Substance: RUXOLITINIB
     Dosage: 5 MG, QD
     Route: 048
     Dates: start: 20150124, end: 20150227
  9. JAKAFI [Suspect]
     Active Substance: RUXOLITINIB
     Dosage: 5 MG, BID
     Route: 048
     Dates: start: 20150128
  10. DIFLUCAN [Concomitant]
     Active Substance: FLUCONAZOLE
     Indication: PRIMARY MYELOFIBROSIS
     Dosage: UNK
     Route: 048
     Dates: start: 20150917

REACTIONS (2)
  - Bone marrow failure [Unknown]
  - Anaemia [Recovered/Resolved]

NARRATIVE: CASE EVENT DATE: 20150123
